FAERS Safety Report 9123339 (Version 2)
Quarter: 2013Q1

REPORT INFORMATION
  Report Type: Spontaneous
  Country: JP (occurrence: JP)
  Receive Date: 20130227
  Receipt Date: 20130304
  Transmission Date: 20140127
  Serious: Yes (Death, Hospitalization)
  Sender: FDA-Public Use
  Company Number: PHHY2013JP019207

PATIENT
  Age: 93 Year
  Sex: Female

DRUGS (4)
  1. EXELON PATCH [Suspect]
     Indication: DEMENTIA
     Route: 062
  2. BLOPRESS [Concomitant]
     Dosage: 8 MG, UNK
     Route: 048
  3. AMOBAN [Concomitant]
     Dosage: 7.5 MG, UNK
     Route: 048
  4. SEROQUEL [Concomitant]
     Dosage: 25 MG, UNK
     Route: 048

REACTIONS (1)
  - Pneumonia [Fatal]
